FAERS Safety Report 6250674-8 (Version None)
Quarter: 2009Q2

REPORT INFORMATION
  Report Type: 
  Country: None (occurrence: None)
  Receive Date: 20090630
  Receipt Date: 20090623
  Transmission Date: 20091009
  Serious: Yes (Death)
  Sender: FDA-Public Use
  Company Number: NL-ROCHE-640366

PATIENT
  Sex: Male

DRUGS (3)
  1. XELODA [Suspect]
     Indication: METASTATIC GASTRIC CANCER
     Route: 065
     Dates: start: 20090616
  2. DOCETAXEL [Suspect]
     Indication: METASTATIC GASTRIC CANCER
     Route: 065
     Dates: start: 20090616
  3. OXALIPLATIN [Suspect]
     Indication: METASTATIC GASTRIC CANCER
     Route: 065
     Dates: start: 20090616

REACTIONS (1)
  - VENTRICULAR FIBRILLATION [None]
